FAERS Safety Report 7348484-3 (Version None)
Quarter: 2011Q1

REPORT INFORMATION
  Report Type: 
  Country: None (occurrence: None)
  Receive Date: 20110314
  Receipt Date: 20110307
  Transmission Date: 20110831
  Serious: Yes (Life-Threatening, Hospitalization)
  Sender: FDA-Public Use
  Company Number: US-ASTRAZENECA-2011SE12867

PATIENT
  Age: 57 Year
  Sex: Male

DRUGS (2)
  1. CRESTOR [Suspect]
     Route: 048
  2. MOTRIN [Suspect]
     Route: 065

REACTIONS (3)
  - ASTHMA [None]
  - HYPERSENSITIVITY [None]
  - RESPIRATORY FAILURE [None]
